FAERS Safety Report 23029863 (Version 1)
Quarter: 2023Q4

REPORT INFORMATION
  Report Type: Report from Study
  Country: US (occurrence: US)
  Receive Date: 20231004
  Receipt Date: 20231004
  Transmission Date: 20240110
  Serious: Yes (Other)
  Sender: FDA-Public Use
  Company Number: US-ABBVIE-5434686

PATIENT
  Sex: Female

DRUGS (1)
  1. HUMIRA [Suspect]
     Active Substance: ADALIMUMAB
     Indication: Rheumatoid arthritis
     Route: 058
     Dates: start: 20230220

REACTIONS (4)
  - Scar [Unknown]
  - Spinal fusion surgery [Unknown]
  - Back pain [Unknown]
  - Post procedural contusion [Unknown]

NARRATIVE: CASE EVENT DATE: 20230101
